FAERS Safety Report 9424622 (Version 1)
Quarter: 2013Q3

REPORT INFORMATION
  Report Type: Spontaneous
  Country: US (occurrence: None)
  Receive Date: 20130725
  Receipt Date: 20130725
  Transmission Date: 20140515
  Serious: Yes (Other)
  Sender: FDA-Public Use
  Company Number: AUR-APL-2013-06139

PATIENT
  Age: 67 Year
  Sex: Male

DRUGS (4)
  1. PRAMIPEXOLE [Suspect]
     Indication: PARKINSON^S DISEASE
  2. SINEMET [Suspect]
     Indication: PARKINSON^S DISEASE
     Dosage: 25/100 THREE TABLETS A DAY
  3. DARIFENACIN (DARIFENACIN) [Concomitant]
  4. AMPHETAMINE [Concomitant]

REACTIONS (2)
  - Hallucination, visual [None]
  - Delusion [None]
